FAERS Safety Report 4440822-4 (Version None)
Quarter: 2004Q3

REPORT INFORMATION
  Report Type: 
  Country: None (occurrence: None)
  Receive Date: 20040903
  Receipt Date: 20040902
  Transmission Date: 20050211
  Serious: Yes (Hospitalization)
  Sender: FDA-Public Use
  Company Number: US-GLAXOSMITHKLINE-A0524502A

PATIENT
  Age: 3 Year
  Sex: Female

DRUGS (2)
  1. AUGMENTIN '125' [Suspect]
     Indication: OTITIS MEDIA
  2. NO CONCURRENT MEDICATION [Concomitant]

REACTIONS (4)
  - HEPATITIS [None]
  - PANCREATITIS [None]
  - PYELONEPHRITIS [None]
  - RASH [None]
